FAERS Safety Report 6144874-5 (Version None)
Quarter: 2009Q2

REPORT INFORMATION
  Report Type: 
  Country: None (occurrence: None)
  Receive Date: 20090406
  Receipt Date: 20090402
  Transmission Date: 20091009
  Serious: Yes (Death, Hospitalization)
  Sender: FDA-Public Use
  Company Number: PHHY2009JP08199

PATIENT
  Sex: Female
  Weight: 55 kg

DRUGS (11)
  1. DIOVAN [Suspect]
     Indication: HYPERTENSION
     Dosage: 40 MG, QD
     Route: 048
     Dates: start: 20080218, end: 20081208
  2. HERBESSOR R [Concomitant]
     Dosage: 100 MG
     Route: 048
     Dates: start: 20060519, end: 20081208
  3. NORVASC [Concomitant]
     Indication: HYPERTENSION
     Dosage: 5 MG
     Route: 048
     Dates: start: 20060519, end: 20081208
  4. ARTIST [Concomitant]
     Indication: HYPERTENSION
     Dosage: 5 MG
     Route: 048
     Dates: start: 20060519, end: 20081208
  5. SIGMART [Concomitant]
     Dosage: 20 MG
     Route: 048
     Dates: start: 20060519, end: 20081208
  6. ITOROL [Concomitant]
     Dosage: 40 MG
     Route: 048
     Dates: start: 20060319, end: 20081208
  7. BUFFERIN [Concomitant]
     Dosage: 162 MG
     Route: 048
     Dates: start: 20060519, end: 20081208
  8. MEVALOTIN [Concomitant]
     Dosage: 5 MG
     Route: 048
     Dates: start: 20060519, end: 20081208
  9. BASEN [Concomitant]
     Dosage: 0.6 MG
     Route: 048
     Dates: start: 20060519, end: 20081208
  10. AMARYL [Concomitant]
     Dosage: 4 MG
     Route: 048
     Dates: start: 20060720, end: 20081208
  11. ACTOS [Concomitant]
     Dosage: 30 MG
     Route: 048
     Dates: start: 20060817, end: 20081208

REACTIONS (2)
  - ANGINA PECTORIS [None]
  - BLOOD PRESSURE DECREASED [None]
